FAERS Safety Report 9787485 (Version 1)
Quarter: 2013Q4

REPORT INFORMATION
  Report Type: Spontaneous
  Country: CH (occurrence: CH)
  Receive Date: 20131230
  Receipt Date: 20131230
  Transmission Date: 20140711
  Serious: Yes (Other)
  Sender: FDA-Public Use
  Company Number: CH-BRISTOL-MYERS SQUIBB COMPANY-19933282

PATIENT
  Age: 67 Year
  Sex: Male

DRUGS (5)
  1. KOMBIGLYZE XR [Suspect]
     Dosage: 1 DF:5MG/1000MG 1X/D
     Dates: start: 20130930, end: 20131007
  2. CONCOR [Concomitant]
     Indication: CARDIAC DISORDER
     Dosage: EVENING
  3. CONCOR [Concomitant]
     Indication: CORONARY ARTERY DISEASE
     Dosage: EVENING
  4. SIMCORA [Concomitant]
     Dosage: EVENING
  5. ASPIRIN CARDIO [Concomitant]
     Dosage: MORNING

REACTIONS (1)
  - Cardiac failure [Recovered/Resolved]
